FAERS Safety Report 8304265-5 (Version None)
Quarter: 2012Q2

REPORT INFORMATION
  Report Type: 
  Country: None (occurrence: None)
  Receive Date: 20120423
  Receipt Date: 20120417
  Transmission Date: 20120825
  Serious: Yes (Other)
  Sender: FDA-Public Use
  Company Number: PHEH2011US06381

PATIENT
  Sex: Female
  Weight: 35.7 kg

DRUGS (7)
  1. CLONAZEPAM [Concomitant]
     Indication: CONVULSION
     Dosage: 0.5 MG, QD
     Route: 048
  2. CLONAZEPAM [Concomitant]
     Dosage: 1 MG, PRN
     Route: 048
  3. KLONOPIN [Concomitant]
     Indication: CONVULSION
     Dosage: UNK
     Route: 048
     Dates: start: 20120312
  4. ZOFRAN [Concomitant]
  5. AFINITOR [Suspect]
     Indication: RENAL CELL CARCINOMA
     Dosage: 5 MG, QD
     Route: 048
     Dates: start: 20111012
  6. CLONAZEPAM [Concomitant]
     Dosage: 2 MG, QHS
     Route: 048
  7. AFINITOR [Suspect]
     Indication: ASTROCYTOMA, LOW GRADE
     Dosage: 2.5 MG, QD
     Route: 048
     Dates: start: 20110916, end: 20111011

REACTIONS (5)
  - ABNORMAL BEHAVIOUR [None]
  - CONVULSION [None]
  - MUSCLE TIGHTNESS [None]
  - CONFUSIONAL STATE [None]
  - DRUG LEVEL BELOW THERAPEUTIC [None]
